FAERS Safety Report 6163273-3 (Version None)
Quarter: 2009Q2

REPORT INFORMATION
  Report Type: 
  Country: None (occurrence: None)
  Receive Date: 20090422
  Receipt Date: 20090416
  Transmission Date: 20091009
  Serious: Yes (Hospitalization)
  Sender: FDA-Public Use
  Company Number: GR-ABBOTT-09P-066-0558903-00

PATIENT
  Age: 82 Year
  Sex: Female
  Weight: 63.4 kg

DRUGS (9)
  1. ZEMPLAR [Suspect]
     Indication: HYPERPARATHYROIDISM SECONDARY
     Route: 042
     Dates: start: 20070223
  2. NEORECORMON [Concomitant]
     Indication: ANAEMIA
  3. VENOFER [Concomitant]
     Indication: ANAEMIA
  4. SUPERAMIN [Concomitant]
     Indication: VITAMIN SUPPLEMENTATION
  5. NEUROBION [Concomitant]
     Indication: VITAMIN SUPPLEMENTATION
  6. MIMPARA [Concomitant]
     Indication: HYPERCALCAEMIA
  7. RENAGEL [Concomitant]
     Indication: HYPERPHOSPHATAEMIA
  8. LOSEC [Concomitant]
     Indication: PROPHYLAXIS AGAINST GASTROINTESTINAL ULCER
  9. DIGOXIN [Concomitant]
     Indication: CARDIAC FAILURE

REACTIONS (2)
  - CHOLECYSTITIS ACUTE [None]
  - GALLBLADDER OEDEMA [None]
